FAERS Safety Report 17354106 (Version 21)
Quarter: 2023Q2

REPORT INFORMATION
  Report Type: Other
  Country: CA (occurrence: CA)
  Receive Date: 20200131
  Receipt Date: 20230530
  Transmission Date: 20230722
  Serious: Yes (Hospitalization, Other)
  Sender: FDA-Public Use
  Company Number: CA-002147023-NVSC2020CA015382

PATIENT
  Age: 38 Year
  Sex: Female

DRUGS (11)
  1. XOLAIR [Suspect]
     Active Substance: OMALIZUMAB
     Indication: Asthma
     Dosage: 375 MG, BIW
     Route: 058
     Dates: start: 20200109
  2. XOLAIR [Suspect]
     Active Substance: OMALIZUMAB
     Dosage: 375 MG, BIW
     Route: 058
     Dates: start: 20200109
  3. XOLAIR [Suspect]
     Active Substance: OMALIZUMAB
     Dosage: 375 MG, BIW
     Route: 058
  4. XOLAIR [Suspect]
     Active Substance: OMALIZUMAB
     Route: 058
     Dates: start: 20230411
  5. PREDNISONE [Concomitant]
     Active Substance: PREDNISONE
     Indication: Product used for unknown indication
     Dosage: 1 DF, PRN
     Route: 048
     Dates: start: 2009
  6. ALBUTEROL [Concomitant]
     Active Substance: ALBUTEROL
     Indication: Product used for unknown indication
     Dosage: 1 DF, QID
     Route: 055
  7. BREO ELLIPTA [Concomitant]
     Active Substance: FLUTICASONE FUROATE\VILANTEROL TRIFENATATE
     Indication: Product used for unknown indication
     Dosage: 1 DF, QD
     Route: 055
  8. INCRUSE ELLIPTA [Concomitant]
     Active Substance: UMECLIDINIUM BROMIDE
     Indication: Product used for unknown indication
     Dosage: 1 DF, QD
     Route: 055
  9. PREVACID [Concomitant]
     Active Substance: LANSOPRAZOLE
     Indication: Product used for unknown indication
     Dosage: UNK
     Route: 065
  10. DOMPERIDONE [Concomitant]
     Active Substance: DOMPERIDONE
     Indication: Product used for unknown indication
     Dosage: UNK
     Route: 065
  11. PANTOPRAZOLE SODIUM [Concomitant]
     Active Substance: PANTOPRAZOLE SODIUM
     Indication: Product used for unknown indication
     Dosage: UNK
     Route: 065

REACTIONS (23)
  - Symptom recurrence [Unknown]
  - Limb discomfort [Unknown]
  - Dyspnoea [Unknown]
  - Fatigue [Unknown]
  - Pallor [Unknown]
  - Mobility decreased [Unknown]
  - Weight increased [Unknown]
  - Injection site pain [Unknown]
  - Post procedural complication [Unknown]
  - Malaise [Unknown]
  - Abdominal discomfort [Unknown]
  - Gait inability [Recovering/Resolving]
  - Joint dislocation [Recovering/Resolving]
  - Anxiety [Unknown]
  - Illness [Unknown]
  - Hyperhidrosis [Unknown]
  - Dysphagia [Unknown]
  - Monoplegia [Unknown]
  - Abdominal pain [Unknown]
  - Decreased appetite [Unknown]
  - Anaphylactic reaction [Unknown]
  - Abdominal distension [Unknown]
  - Nausea [Unknown]

NARRATIVE: CASE EVENT DATE: 20200115
